FAERS Safety Report 10072159 (Version 1)
Quarter: 2014Q2

REPORT INFORMATION
  Report Type: Spontaneous
  Country: US (occurrence: None)
  Receive Date: 20140409
  Receipt Date: 20140409
  Transmission Date: 20141212
  Serious: Yes (Hospitalization)
  Sender: FDA-Public Use
  Company Number: IPC201403-000144

PATIENT
  Age: 13 Year
  Sex: Female
  Weight: 61.4 kg

DRUGS (2)
  1. FUROSEMIDE [Suspect]
  2. AMLODIPINE BESILATE [Suspect]
     Indication: HYPERTENSION

REACTIONS (12)
  - Renal failure acute [None]
  - Respiratory disorder [None]
  - Glomerulonephritis membranoproliferative [None]
  - Blood calcium decreased [None]
  - Protein total decreased [None]
  - Blood albumin decreased [None]
  - Blood lactate dehydrogenase increased [None]
  - Platelet count increased [None]
  - White blood cell count increased [None]
  - Complement factor C3 decreased [None]
  - Pleural effusion [None]
  - Hypertension [None]
